FAERS Safety Report 5263195-6 (Version None)
Quarter: 2007Q1

REPORT INFORMATION
  Report Type: 
  Country: None (occurrence: None)
  Receive Date: 20070312
  Receipt Date: 20070223
  Transmission Date: 20070707
  Serious: Yes (Other)
  Sender: FDA-Public Use
  Company Number: US-PFIZER INC-2007017622

PATIENT
  Sex: Female

DRUGS (1)
  1. NORVASC [Suspect]
     Route: 048

REACTIONS (2)
  - HALLUCINATION [None]
  - MEDICATION ERROR [None]
